FAERS Safety Report 8504775-1 (Version None)
Quarter: 2012Q3

REPORT INFORMATION
  Report Type: 
  Country: None (occurrence: None)
  Receive Date: 20120712
  Receipt Date: 20120705
  Transmission Date: 20120928
  Serious: Yes (Other)
  Sender: FDA-Public Use
  Company Number: US-BIOGENIDEC-2012BI004879

PATIENT
  Age: 53 Year
  Sex: Female

DRUGS (1)
  1. TYSABRI [Suspect]
     Indication: MULTIPLE SCLEROSIS
     Route: 042
     Dates: start: 20110707, end: 20111209

REACTIONS (5)
  - DEHYDRATION [None]
  - BREAST CANCER IN SITU [None]
  - WEIGHT INCREASED [None]
  - BREAST PAIN [None]
  - DIARRHOEA [None]
